FAERS Safety Report 9199376 (Version 4)
Quarter: 2013Q3

REPORT INFORMATION
  Report Type: Spontaneous
  Country: KR (occurrence: None)
  Receive Date: 20130326
  Receipt Date: 20130924
  Transmission Date: 20140515
  Serious: Yes (Hospitalization)
  Sender: FDA-Public Use
  Company Number: 2013KR001358

PATIENT
  Age: 44 Year
  Sex: Male
  Weight: 55 kg

DRUGS (1)
  1. PONATINIB [Suspect]
     Indication: CHRONIC MYELOID LEUKAEMIA
     Route: 048
     Dates: start: 20110704, end: 20130313

REACTIONS (29)
  - Cerebral infarction [None]
  - Extrasystoles [None]
  - Conduction disorder [None]
  - Right ventricular hypertrophy [None]
  - Electrocardiogram Q waves [None]
  - Platelet count decreased [None]
  - Low density lipoprotein increased [None]
  - Blood lactate dehydrogenase increased [None]
  - Specific gravity urine increased [None]
  - Heart rate decreased [None]
  - Electrocardiogram T wave inversion [None]
  - Blood pressure systolic increased [None]
  - Pulmonary hypertension [None]
  - Transient ischaemic attack [None]
  - Electrocardiogram repolarisation abnormality [None]
  - Red blood cell sedimentation rate increased [None]
  - Red blood cell count increased [None]
  - Mean cell volume decreased [None]
  - Mean cell haemoglobin decreased [None]
  - Mean cell haemoglobin concentration decreased [None]
  - Fibrin D dimer increased [None]
  - Ventricular extrasystoles [None]
  - Vertebral artery stenosis [None]
  - Cerebral artery stenosis [None]
  - Ventricular hypertrophy [None]
  - Left ventricular dysfunction [None]
  - Carotid artery stenosis [None]
  - Haematocrit decreased [None]
  - Platelet count increased [None]
